FAERS Safety Report 5771448-8 (Version None)
Quarter: 2008Q2

REPORT INFORMATION
  Report Type: 
  Country: None (occurrence: None)
  Receive Date: 20080613
  Receipt Date: 20080603
  Transmission Date: 20081010
  Serious: Yes (Life-Threatening, Other)
  Sender: FDA-Public Use
  Company Number: DE-NOVOPROD-272293

PATIENT
  Sex: Female

DRUGS (4)
  1. ACTRAPHANE 30 NOVOLET [Suspect]
     Indication: INSULIN-REQUIRING TYPE 2 DIABETES MELLITUS
     Dosage: UNK, QD
     Route: 058
     Dates: start: 20030107, end: 20080213
  2. ACTRAPHANE 30 NOVOLET [Suspect]
     Dosage: UNK, QD
     Route: 058
     Dates: start: 20080214, end: 20080215
  3. ACTRAPHANE 30 NOVOLET [Suspect]
     Dosage: UNK, QD
     Route: 058
     Dates: start: 20080216
  4. TAVANIC [Concomitant]
     Dosage: 500 MG, QD
     Route: 048
     Dates: start: 20080215, end: 20080215

REACTIONS (1)
  - HYPERGLYCAEMIA [None]
